FAERS Safety Report 10576038 (Version 1)
Quarter: 2014Q4

REPORT INFORMATION
  Report Type: Spontaneous
  Country: US (occurrence: None)
  Receive Date: 20141110
  Receipt Date: 20141110
  Transmission Date: 20150529
  Serious: Yes (Hospitalization)
  Sender: FDA-Public Use
  Company Number: None

PATIENT
  Age: 77 Year
  Sex: Female
  Weight: 60.78 kg

DRUGS (1)
  1. PROLIA [Suspect]
     Active Substance: DENOSUMAB
     Indication: OSTEOPOROSIS
     Dosage: 60 MG, Q 6 MOS, SUBCUTANEOUS
     Route: 058
     Dates: start: 20131202, end: 20140822

REACTIONS (2)
  - Amnesia [None]
  - Meningitis viral [None]

NARRATIVE: CASE EVENT DATE: 20140901
